FAERS Safety Report 7483662-4 (Version None)
Quarter: 2011Q2

REPORT INFORMATION
  Report Type: 
  Country: None (occurrence: None)
  Receive Date: 20110517
  Receipt Date: 20110515
  Transmission Date: 20111010
  Serious: No
  Sender: FDA-Public Use
  Company Number: US-PFIZER INC-2011104230

PATIENT
  Sex: Male
  Weight: 181.41 kg

DRUGS (1)
  1. ADVIL LIQUI-GELS [Suspect]
     Indication: LIMB DISCOMFORT
     Dosage: UNK
     Dates: start: 20110514

REACTIONS (2)
  - HYPERTONIA [None]
  - MUSCLE SWELLING [None]
